FAERS Safety Report 6354798-6 (Version None)
Quarter: 2009Q3

REPORT INFORMATION
  Report Type: 
  Country: None (occurrence: None)
  Receive Date: 20090909
  Receipt Date: 20090907
  Transmission Date: 20100115
  Serious: Yes (Hospitalization)
  Sender: FDA-Public Use
  Company Number: 2009SP017200

PATIENT
  Age: 31 Year
  Sex: Female
  Weight: 53 kg

DRUGS (7)
  1. PUREGON (FOLLITROPIN BETA) [Suspect]
     Indication: IN VITRO FERTILISATION
     Dosage: 150 IU; 100 IU; 75 IU
     Dates: start: 20080601, end: 20080601
  2. PUREGON (FOLLITROPIN BETA) [Suspect]
     Indication: IN VITRO FERTILISATION
     Dosage: 150 IU; 100 IU; 75 IU
     Dates: start: 20080601, end: 20080601
  3. PUREGON (FOLLITROPIN BETA) [Suspect]
     Indication: IN VITRO FERTILISATION
     Dosage: 150 IU; 100 IU; 75 IU
     Dates: start: 20080601, end: 20080601
  4. CHORIONIC GONADOTROPIN [Suspect]
     Indication: IN VITRO FERTILISATION
     Dosage: 10000 IU; 5000 IU
     Dates: start: 20060901, end: 20060901
  5. CHORIONIC GONADOTROPIN [Suspect]
     Indication: IN VITRO FERTILISATION
     Dosage: 10000 IU; 5000 IU
     Dates: start: 20080601, end: 20080601
  6. TRIPTORELIN [Concomitant]
  7. GONAL-F [Concomitant]

REACTIONS (7)
  - CEREBRAL INFARCTION [None]
  - CEREBRAL VENOUS THROMBOSIS [None]
  - COMA [None]
  - HEMIPARESIS [None]
  - INTRACRANIAL VENOUS SINUS THROMBOSIS [None]
  - OVARIAN HYPERSTIMULATION SYNDROME [None]
  - SUPERIOR SAGITTAL SINUS THROMBOSIS [None]
